FAERS Safety Report 20420548 (Version 1)
Quarter: 2022Q1

REPORT INFORMATION
  Report Type: Spontaneous
  Country: US (occurrence: None)
  Receive Date: 20220202
  Receipt Date: 20220202
  Transmission Date: 20220423
  Serious: Yes (Other)
  Sender: FDA-Public Use
  Company Number: None

PATIENT
  Age: 17 Year
  Sex: Female
  Weight: 64.23 kg

DRUGS (3)
  1. LEVALBUTEROL [Suspect]
     Active Substance: LEVALBUTEROL
     Indication: Cough
     Dosage: 3ML Q 4-6HRS PRN INHALED?
     Route: 055
     Dates: start: 20220119, end: 20220131
  2. LEVALBUTEROL [Suspect]
     Active Substance: LEVALBUTEROL
     Indication: COVID-19 pneumonia
  3. PREDNISONE [Concomitant]
     Active Substance: PREDNISONE

REACTIONS (5)
  - Hypoaesthesia oral [None]
  - Hypoaesthesia oral [None]
  - Hypoaesthesia oral [None]
  - Heart rate increased [None]
  - Blood pressure diastolic increased [None]

NARRATIVE: CASE EVENT DATE: 20220131
